FAERS Safety Report 5450075-6 (Version None)
Quarter: 2007Q3

REPORT INFORMATION
  Report Type: 
  Country: None (occurrence: None)
  Receive Date: 20070912
  Receipt Date: 20070904
  Transmission Date: 20080115
  Serious: Yes (Hospitalization)
  Sender: FDA-Public Use
  Company Number: US-ELI_LILLY_AND_COMPANY-US200709000399

PATIENT
  Age: 36 Year
  Sex: Female

DRUGS (3)
  1. STRATTERA [Suspect]
     Dates: start: 20070801
  2. ZYPREXA [Suspect]
     Dosage: UNK, UNK
     Dates: start: 20070801
  3. ALCOHOL [Concomitant]
     Dates: start: 20070801

REACTIONS (3)
  - COMA [None]
  - INTENTIONAL OVERDOSE [None]
  - SUICIDE ATTEMPT [None]
